FAERS Safety Report 9594509 (Version 1)
Quarter: 2013Q4

REPORT INFORMATION
  Report Type: Spontaneous
  Country: US (occurrence: US)
  Receive Date: 20131004
  Receipt Date: 20131004
  Transmission Date: 20140711
  Serious: No
  Sender: FDA-Public Use
  Company Number: US-GLAXOSMITHKLINE-A1018888A

PATIENT
  Sex: 0

DRUGS (1)
  1. SUMATRIPTAN [Suspect]
     Route: 045

REACTIONS (1)
  - Drug ineffective [Unknown]
